FAERS Safety Report 4770199-6 (Version None)
Quarter: 2005Q3

REPORT INFORMATION
  Report Type: 
  Country: None (occurrence: None)
  Receive Date: 20050915
  Receipt Date: 20050905
  Transmission Date: 20060218
  Serious: Yes (Death)
  Sender: FDA-Public Use
  Company Number: CH-JNJFOC-20050901541

PATIENT
  Sex: Male

DRUGS (22)
  1. HALDOL [Suspect]
     Route: 048
  2. HALDOL [Suspect]
     Route: 048
  3. HALDOL [Suspect]
     Route: 048
  4. HALDOL [Suspect]
     Indication: SUICIDAL IDEATION
     Route: 048
  5. HALDOL [Suspect]
     Indication: DEPRESSION
     Dosage: REPORTED AS 3-4MG
     Route: 048
  6. REMERON [Suspect]
     Route: 048
  7. REMERON [Suspect]
     Route: 048
  8. REMERON [Suspect]
     Indication: DRUG USE FOR UNKNOWN INDICATION
     Route: 048
  9. LORAZEPAM [Suspect]
     Route: 048
  10. LORAZEPAM [Suspect]
     Route: 048
  11. LORAZEPAM [Suspect]
     Route: 048
  12. LORAZEPAM [Suspect]
     Route: 048
  13. LORAZEPAM [Suspect]
     Route: 048
  14. LORAZEPAM [Suspect]
     Indication: DRUG USE FOR UNKNOWN INDICATION
     Route: 048
  15. CIPRALEX [Suspect]
     Route: 048
  16. CIPRALEX [Suspect]
     Indication: DRUG USE FOR UNKNOWN INDICATION
     Route: 048
  17. PARAGAR [Suspect]
     Route: 048
  18. PARAGAR [Suspect]
     Route: 048
  19. PARAGAR [Suspect]
     Indication: DRUG USE FOR UNKNOWN INDICATION
     Route: 048
  20. COSAAR PLUS [Suspect]
     Route: 048
  21. COSAAR PLUS [Suspect]
     Indication: DRUG USE FOR UNKNOWN INDICATION
     Dosage: HAD BEEN TAKEN FOR YEARS
     Route: 048
  22. SORTIS [Suspect]
     Indication: DRUG USE FOR UNKNOWN INDICATION
     Dosage: HAD BEEN TAKEN FOR YEARS
     Route: 048

REACTIONS (1)
  - COMPLETED SUICIDE [None]
